FAERS Safety Report 9409518 (Version 2)
Quarter: 2013Q3

REPORT INFORMATION
  Report Type: Spontaneous
  Country: US (occurrence: None)
  Receive Date: 20130405
  Receipt Date: 20130729
  Transmission Date: 20140515
  Serious: Yes (Other)
  Sender: FDA-Public Use
  Company Number: 2009021253

PATIENT
  Age: 14 Year
  Sex: Male
  Weight: 64.86 kg

DRUGS (23)
  1. PRIVIGEN [Suspect]
     Indication: PRIMARY IMMUNODEFICIENCY SYNDROME
     Dosage: 200 ML OVER 2 HRS EVERY 4 WKS IV
     Route: 042
     Dates: start: 20091023, end: 20091023
  2. PRIVIGEN [Suspect]
     Indication: IMMUNODEFICIENCY COMMON VARIABLE
     Dosage: 200 ML OVER 2 HRS EVERY 4 WKS IV
     Route: 042
     Dates: start: 20091023, end: 20091023
  3. ACETAMINOPHEN (PARACETAMOL) [Concomitant]
  4. DIPHENHYDRAMINE (DIPHENHYDRAMINE) [Concomitant]
  5. HEPARIN (HEPARIN) [Concomitant]
  6. LIDOCAINE (LIDOCAINE) [Concomitant]
  7. EPI-PEN (EPINEPHRINE) [Concomitant]
  8. ADVAIR (SERETIDE/ 01420901) [Concomitant]
  9. OMEPRAZOLE (OMEPRAZOLE) [Concomitant]
  10. ASTELIN (DIPROPHYLLINE) [Concomitant]
  11. MIRALAX [Concomitant]
  12. ZOFRAN (ONDANSETRON) [Concomitant]
  13. ALBUTEROL (SALBUTAMOL) [Concomitant]
  14. SODIUM CHLORIDE [Concomitant]
  15. IBUPROFEN (IBUPROFEN) [Concomitant]
  16. FLOVENT (FLUTICASONE PROPIONATE) [Concomitant]
  17. SALINE NASAL SPRAY (SODIUM CHLORIDE) [Concomitant]
  18. TYLENOL EXTRA STRENGTH (PARACETAMOL) [Concomitant]
  19. PREVACID (LANSOPRAZOLE) [Concomitant]
  20. DULERA [Concomitant]
  21. VENTOLIN [Concomitant]
  22. CEFDINIR [Concomitant]
  23. VITAMIN D [Concomitant]

REACTIONS (13)
  - Flushing [None]
  - Abdominal pain upper [None]
  - Chills [None]
  - Heart rate increased [None]
  - Agitation [None]
  - Nausea [None]
  - Lymphadenopathy [None]
  - Somnolence [None]
  - Pneumonia [None]
  - Fatigue [None]
  - Hypersomnia [None]
  - Infection [None]
  - Furuncle [None]
